FAERS Safety Report 9455479 (Version 2)
Quarter: 2013Q3

REPORT INFORMATION
  Report Type: Report from Study
  Country: US (occurrence: US)
  Receive Date: 20130813
  Receipt Date: 20130911
  Transmission Date: 20140515
  Serious: Yes (Hospitalization, Other)
  Sender: FDA-Public Use
  Company Number: US-ROCHE-1261021

PATIENT
  Sex: Female

DRUGS (1)
  1. NUTROPIN AQ [Suspect]
     Indication: PRODUCT USED FOR UNKNOWN INDICATION
     Route: 058

REACTIONS (4)
  - Brain operation [Unknown]
  - Pneumothorax [Unknown]
  - Malaise [Unknown]
  - Pneumonia [Unknown]
